FAERS Safety Report 9924957 (Version 2)
Quarter: 2014Q1

REPORT INFORMATION
  Report Type: Spontaneous
  Country: BR (occurrence: BR)
  Receive Date: 20140226
  Receipt Date: 20140226
  Transmission Date: 20141002
  Serious: Yes (Other)
  Sender: FDA-Public Use
  Company Number: BR-009507513-1402BRA002885

PATIENT
  Age: 62 Year
  Sex: Female
  Weight: 58 kg

DRUGS (14)
  1. JANUMET [Suspect]
     Indication: DIABETES MELLITUS
     Dosage: 1 TABLET, QD
     Route: 048
     Dates: start: 20110831
  2. JANUMET [Suspect]
     Dosage: 1 TABLET, BID
     Route: 048
     Dates: end: 2013
  3. JANUMET [Suspect]
     Dosage: 1 TABLET, QD
     Route: 048
     Dates: start: 2013
  4. GLICLAZIDE [Concomitant]
     Indication: DIABETES MELLITUS
     Dosage: 2 TABLET, QAM
     Route: 048
     Dates: start: 201108
  5. VERTIGIUM [Concomitant]
     Indication: LABYRINTHITIS
     Dosage: 10 MG, PRN
     Route: 048
  6. OMEPRAZOLE [Concomitant]
     Indication: GASTRITIS
     Dosage: 20 MG, QD
     Route: 048
  7. OMEPRAZOLE [Concomitant]
     Dosage: 20 MG, PRN
     Route: 048
  8. LOSARTAN POTASSIUM (NON-MERCK) [Concomitant]
     Indication: HYPERTENSION
     Dosage: 50 MG, QD
     Route: 048
     Dates: start: 2011
  9. CHLORTHALIDONE [Concomitant]
     Dosage: UNK
     Route: 048
     Dates: end: 201202
  10. SIMVASTATIN (MESILIP) [Concomitant]
     Indication: BLOOD CHOLESTEROL INCREASED
     Dosage: 20 MG, QOD
     Route: 048
  11. SINVACOR [Concomitant]
     Indication: BLOOD CHOLESTEROL INCREASED
     Dosage: 20 MG, QOD
     Route: 048
  12. OMEGA-3 [Concomitant]
     Indication: DIABETES MELLITUS
     Dosage: 1000 MG, QD
     Route: 048
     Dates: start: 201401
  13. OMEGA-3 [Concomitant]
     Indication: BLOOD CHOLESTEROL INCREASED
  14. OMEGA-3 [Concomitant]
     Indication: PROPHYLAXIS

REACTIONS (16)
  - Hypertensive crisis [Recovered/Resolved]
  - Drug ineffective [Unknown]
  - Inappropriate schedule of drug administration [Unknown]
  - Blood glucose increased [Unknown]
  - Nausea [Unknown]
  - Inappropriate schedule of drug administration [Unknown]
  - Hepatic steatosis [Recovered/Resolved]
  - Ear infection [Recovered/Resolved]
  - Extrasystoles [Recovered/Resolved]
  - Palpitations [Not Recovered/Not Resolved]
  - Urinary tract infection [Recovered/Resolved]
  - Urethral pain [Recovered/Resolved]
  - Bladder pain [Recovered/Resolved]
  - Urethral pain [Recovered/Resolved]
  - Bladder pain [Recovered/Resolved]
  - Blood glucose increased [Recovered/Resolved]
